FAERS Safety Report 15150220 (Version 1)
Quarter: 2018Q3

REPORT INFORMATION
  Report Type: Spontaneous
  Country: NL (occurrence: NL)
  Receive Date: 20180716
  Receipt Date: 20180716
  Transmission Date: 20181010
  Serious: Yes (Hospitalization)
  Sender: FDA-Public Use
  Company Number: NL-US WORLDMEDS, LLC-STA_00017153

PATIENT
  Age: 61 Year
  Sex: Female

DRUGS (10)
  1. OMEPRAZOLE. [Concomitant]
     Active Substance: OMEPRAZOLE
     Indication: PRODUCT USED FOR UNKNOWN INDICATION
  2. THYRAX 0.025 MG [Concomitant]
     Indication: PRODUCT USED FOR UNKNOWN INDICATION
  3. APOMORPHINE HYDROCHLORIDE [Suspect]
     Active Substance: APOMORPHINE HYDROCHLORIDE
     Indication: PARKINSON^S DISEASE
     Route: 058
     Dates: start: 20120404, end: 20140401
  4. APOMORPHINE PUMP [Suspect]
     Active Substance: APOMORPHINE
     Indication: PARKINSON^S DISEASE
     Route: 058
     Dates: start: 20140402, end: 20140405
  5. DOMPERIDONE [Concomitant]
     Active Substance: DOMPERIDONE
     Indication: PRODUCT USED FOR UNKNOWN INDICATION
  6. MADOPAR 62.5 MG [Concomitant]
     Indication: PRODUCT USED FOR UNKNOWN INDICATION
  7. NEUPRO 6 MG [Concomitant]
     Indication: PRODUCT USED FOR UNKNOWN INDICATION
  8. RIVOTRIL [Concomitant]
     Active Substance: CLONAZEPAM
     Indication: PRODUCT USED FOR UNKNOWN INDICATION
  9. SYMMETREL 100 MG [Concomitant]
     Indication: PRODUCT USED FOR UNKNOWN INDICATION
  10. SINEMET 125 MG [Concomitant]
     Indication: PRODUCT USED FOR UNKNOWN INDICATION

REACTIONS (3)
  - Haemorrhage [Unknown]
  - Contusion [Unknown]
  - Platelet count decreased [Unknown]

NARRATIVE: CASE EVENT DATE: 20140405
